FAERS Safety Report 7636287-1 (Version None)
Quarter: 2011Q3

REPORT INFORMATION
  Report Type: 
  Country: None (occurrence: None)
  Receive Date: 20110726
  Receipt Date: 20110701
  Transmission Date: 20111222
  Serious: Yes (Death, Hospitalization)
  Sender: FDA-Public Use
  Company Number: US-GLAXOSMITHKLINE-A0748621A

PATIENT
  Age: 61 Year
  Sex: Male
  Weight: 119.1 kg

DRUGS (14)
  1. ALLOPURINOL [Concomitant]
  2. CALCIUM CARBONATE [Concomitant]
  3. IMIPRAMINE [Concomitant]
  4. AVANDIA [Suspect]
     Indication: TYPE 2 DIABETES MELLITUS
     Dosage: 4MG IN THE MORNING
     Route: 048
     Dates: start: 20070321, end: 20070609
  5. CRESTOR [Concomitant]
  6. LEVOTHYROXINE SODIUM [Concomitant]
  7. LYRICA [Concomitant]
  8. FUROSEMIDE INTENSOL [Concomitant]
  9. METOCLOPRAMIDE [Concomitant]
  10. GLIMEPIRIDE [Concomitant]
  11. ISOSORBIDE DINITRATE [Concomitant]
  12. AVANDARYL [Suspect]
     Indication: DIABETES MELLITUS
     Route: 048
  13. PLAVIX [Concomitant]
  14. OMEPRAZOLE [Concomitant]

REACTIONS (5)
  - MYOCARDIAL INFARCTION [None]
  - CARDIAC ARREST [None]
  - CARDIAC FAILURE CONGESTIVE [None]
  - ISCHAEMIC CARDIOMYOPATHY [None]
  - DEATH [None]
